FAERS Safety Report 6388940-8 (Version None)
Quarter: 2009Q4

REPORT INFORMATION
  Report Type: 
  Country: None (occurrence: None)
  Receive Date: 20091001
  Receipt Date: 20090922
  Transmission Date: 20100525
  Serious: Yes (Other)
  Sender: FDA-Public Use
  Company Number: ADR29602009

PATIENT
  Age: 39 Year
  Sex: Female

DRUGS (2)
  1. RAMIPRIL [Suspect]
     Indication: HYPERTENSION
     Dosage: 5 MG, ORAL
     Route: 048
     Dates: start: 20060301
  2. LEVOTHYROXINE SODIUM [Concomitant]

REACTIONS (3)
  - ARTHROPOD BITE [None]
  - SCAR [None]
  - SKIN REACTION [None]
